FAERS Safety Report 4788275-0 (Version None)
Quarter: 2005Q4

REPORT INFORMATION
  Report Type: 
  Country: None (occurrence: None)
  Receive Date: 20051004
  Receipt Date: 20051004
  Transmission Date: 20060501
  Serious: Yes (Hospitalization)
  Sender: FDA-Public Use
  Company Number: None

PATIENT
  Age: 27 Year
  Sex: Male
  Weight: 103.8737 kg

DRUGS (1)
  1. ULTRAVIST 300 [Suspect]
     Indication: TESTICULAR NEOPLASM
     Dosage: 100 ML , IV
     Route: 042
     Dates: start: 20050819

REACTIONS (3)
  - DYSPNOEA [None]
  - FEELING HOT [None]
  - THROAT TIGHTNESS [None]
